FAERS Safety Report 19354868 (Version 1)
Quarter: 2021Q2

REPORT INFORMATION
  Report Type: Spontaneous
  Country: GB (occurrence: GB)
  Receive Date: 20210531
  Receipt Date: 20210531
  Transmission Date: 20210717
  Serious: Yes (Hospitalization, Other)
  Sender: FDA-Public Use
  Company Number: GB-PFIZER INC-2021561788

PATIENT
  Age: 58 Year
  Sex: Male
  Weight: 112 kg

DRUGS (4)
  1. ASTRAZENECA COVID?19 VACCINE [Suspect]
     Active Substance: AZD-1222
     Dosage: DOSE 2
     Dates: start: 20210501, end: 20210501
  2. DEPO?MEDRONE [Suspect]
     Active Substance: METHYLPREDNISOLONE
  3. ASTRAZENECA COVID?19 VACCINE [Suspect]
     Active Substance: AZD-1222
     Indication: COVID-19 IMMUNISATION
     Dosage: DOSE 1
     Dates: start: 20210213, end: 20210213
  4. BENADRYL ALLERGY RELIEF [Concomitant]

REACTIONS (3)
  - Pruritus [Recovering/Resolving]
  - Rash papular [Recovering/Resolving]
  - Burning sensation [Unknown]

NARRATIVE: CASE EVENT DATE: 20210214
